FAERS Safety Report 25573535 (Version 1)
Quarter: 2025Q3

REPORT INFORMATION
  Report Type: Spontaneous
  Country: JP (occurrence: JP)
  Receive Date: 20250717
  Receipt Date: 20250717
  Transmission Date: 20251021
  Serious: Yes (Death)
  Sender: OTSUKA
  Company Number: JP-MMM-Otsuka-VB95DIF4

PATIENT
  Age: 60 Year
  Sex: Male

DRUGS (2)
  1. SAMSCA [Suspect]
     Active Substance: TOLVAPTAN
     Indication: Hepatic cirrhosis
     Dosage: 7.5MG/DAY
     Route: 048
  2. SAMSCA [Suspect]
     Active Substance: TOLVAPTAN
     Indication: Fluid retention

REACTIONS (1)
  - Hepatic cirrhosis [Fatal]
